FAERS Safety Report 7122590-0 (Version None)
Quarter: 2010Q4

REPORT INFORMATION
  Report Type: 
  Country: None (occurrence: None)
  Receive Date: 20101124
  Receipt Date: 20101115
  Transmission Date: 20110411
  Serious: Yes (Other)
  Sender: FDA-Public Use
  Company Number: TW-WATSON-2010-15046

PATIENT
  Age: 47 Year
  Sex: Female

DRUGS (3)
  1. FLUOROURACIL [Suspect]
     Indication: NASOPHARYNGEAL CANCER
     Dosage: UNK
  2. CISPLATIN [Suspect]
     Indication: NASOPHARYNGEAL CANCER
     Dosage: UNK
  3. RADIOTHERAPY [Suspect]
     Indication: NASOPHARYNGEAL CANCER
     Dosage: 7440 CGY IN 62 FRACTIONS

REACTIONS (3)
  - DIPLOPIA [None]
  - MYOTONIA [None]
  - VITH NERVE DISORDER [None]
